FAERS Safety Report 14726434 (Version 1)
Quarter: 2018Q2

REPORT INFORMATION
  Report Type: Spontaneous
  Country: JP (occurrence: JP)
  Receive Date: 20180406
  Receipt Date: 20180406
  Transmission Date: 20180711
  Serious: Yes (Life-Threatening, Hospitalization, Other)
  Sender: FDA-Public Use
  Company Number: JP-ACCORD-065362

PATIENT
  Age: 96 Year
  Sex: Female
  Weight: 40 kg

DRUGS (12)
  1. RIVAROXABAN [Concomitant]
     Active Substance: RIVAROXABAN
  2. BROTIZOLAM [Concomitant]
     Active Substance: BROTIZOLAM
  3. CARBOCYSTEINE [Concomitant]
     Active Substance: CARBOCYSTEINE
  4. CELECOXIB. [Interacting]
     Active Substance: CELECOXIB
     Indication: BACK PAIN
  5. ZALTOPROFEN [Concomitant]
     Active Substance: ZALTOPROFEN
  6. AMLODIPINE [Suspect]
     Active Substance: AMLODIPINE BESYLATE
     Indication: HYPERTENSION
  7. GARENOXACIN [Interacting]
     Active Substance: GARENOXACIN
     Indication: COUGH
  8. CEFTRIAXONE. [Interacting]
     Active Substance: CEFTRIAXONE
     Indication: PYREXIA
     Route: 042
  9. CANDESARTAN. [Interacting]
     Active Substance: CANDESARTAN
     Indication: HYPERTENSION
  10. LANSOPRAZOLE. [Interacting]
     Active Substance: LANSOPRAZOLE
     Indication: GASTRITIS
  11. TRANEXAMIC ACID. [Concomitant]
     Active Substance: TRANEXAMIC ACID
  12. BISOPROLOL [Concomitant]
     Active Substance: BISOPROLOL

REACTIONS (4)
  - Agranulocytosis [Recovering/Resolving]
  - Drug interaction [Unknown]
  - Leukocytosis [Recovered/Resolved]
  - Bone pain [Recovered/Resolved]
